FAERS Safety Report 25629408 (Version 1)
Quarter: 2025Q3

REPORT INFORMATION
  Report Type: Spontaneous
  Country: US (occurrence: US)
  Receive Date: 20250731
  Receipt Date: 20250731
  Transmission Date: 20251020
  Serious: Yes (Hospitalization)
  Sender: MYLAN
  Company Number: US-MYLANLABS-2025M1063142

PATIENT
  Age: 66 Year
  Sex: Male

DRUGS (8)
  1. ETOMIDATE [Suspect]
     Active Substance: ETOMIDATE
     Indication: Anaesthesia
  2. ETOMIDATE [Suspect]
     Active Substance: ETOMIDATE
     Route: 065
  3. ETOMIDATE [Suspect]
     Active Substance: ETOMIDATE
     Route: 065
  4. ETOMIDATE [Suspect]
     Active Substance: ETOMIDATE
  5. PROPOFOL [Suspect]
     Active Substance: PROPOFOL
     Indication: Anaesthesia
  6. PROPOFOL [Suspect]
     Active Substance: PROPOFOL
     Route: 065
  7. PROPOFOL [Suspect]
     Active Substance: PROPOFOL
     Route: 065
  8. PROPOFOL [Suspect]
     Active Substance: PROPOFOL

REACTIONS (1)
  - Catatonia [Recovered/Resolved]
